FAERS Safety Report 18301303 (Version 1)
Quarter: 2020Q3

REPORT INFORMATION
  Report Type: Spontaneous
  Country: US (occurrence: US)
  Receive Date: 20200923
  Receipt Date: 20200923
  Transmission Date: 20201103
  Serious: No
  Sender: FDA-Public Use
  Company Number: None

PATIENT
  Age: 65 Year
  Sex: Male
  Weight: 68 kg

DRUGS (1)
  1. IODIXANOL (IODIXANOL 270MGL/ML INJ) [Suspect]
     Active Substance: IODIXANOL
     Indication: ANGIOGRAM
     Dosage: ?          OTHER ROUTE:IV?
     Route: 042
     Dates: start: 20200804

REACTIONS (4)
  - Rhabdomyolysis [None]
  - Anxiety [None]
  - Restlessness [None]
  - Akathisia [None]

NARRATIVE: CASE EVENT DATE: 20200804
